FAERS Safety Report 10258119 (Version 7)
Quarter: 2014Q3

REPORT INFORMATION
  Report Type: Spontaneous
  Country: US (occurrence: None)
  Receive Date: 20140623
  Receipt Date: 20140908
  Transmission Date: 20150326
  Serious: Yes (Hospitalization)
  Sender: FDA-Public Use
  Company Number: UNT-2014-002028

PATIENT
  Age: 75 Year
  Sex: Male
  Weight: 97.5 kg

DRUGS (2)
  1. REMODULIN [Suspect]
     Active Substance: TREPROSTINIL
     Indication: PULMONARY ARTERIAL HYPERTENSION
     Dosage: 0.00125 UG/KG,??
     Route: 058
     Dates: start: 20140603
  2. WARFARIN (WARFARIN) [Concomitant]
     Active Substance: WARFARIN

REACTIONS (13)
  - Infusion site erythema [None]
  - Condition aggravated [None]
  - Fluid retention [None]
  - Dyspnoea [None]
  - Infusion site bruising [None]
  - Cor pulmonale [None]
  - Infusion site pruritus [None]
  - Infusion site haemorrhage [None]
  - Infusion site irritation [None]
  - Oedema peripheral [None]
  - Infusion site pain [None]
  - Infusion site swelling [None]
  - Pulmonary hypertension [None]

NARRATIVE: CASE EVENT DATE: 20140604
